FAERS Safety Report 6937708-X (Version None)
Quarter: 2010Q3

REPORT INFORMATION
  Report Type: 
  Country: None (occurrence: None)
  Receive Date: 20100820
  Receipt Date: 20100820
  Transmission Date: 20110219
  Serious: Yes (Other)
  Sender: FDA-Public Use
  Company Number: None

PATIENT
  Age: 35 Year
  Sex: Female
  Weight: 56.6996 kg

DRUGS (1)
  1. MAXIMUM STRENGTH WAL-SOM 50 MG WALGREENS [Suspect]
     Indication: INSOMNIA
     Dosage: 50 MG 1 PER NIGHT PO
     Route: 048
     Dates: start: 20100815, end: 20100818

REACTIONS (8)
  - EAR DISORDER [None]
  - HEADACHE [None]
  - HEARING IMPAIRED [None]
  - INFLUENZA LIKE ILLNESS [None]
  - MUSCULAR WEAKNESS [None]
  - PAIN [None]
  - PRODUCT CONTAMINATION [None]
  - PRODUCT QUALITY ISSUE [None]
